FAERS Safety Report 6156529-1 (Version None)
Quarter: 2009Q2

REPORT INFORMATION
  Report Type: 
  Country: None (occurrence: None)
  Receive Date: 20090416
  Receipt Date: 20090409
  Transmission Date: 20091009
  Serious: Yes (Life-Threatening, Hospitalization, Disabling, Congenital Anomaly, Other)
  Sender: FDA-Public Use
  Company Number: US-AVENTIS-200415406US

PATIENT
  Sex: Female
  Weight: 2.78 kg

DRUGS (7)
  1. LOVENOX [Suspect]
     Dosage: DOSE: UNK
     Route: 065
     Dates: start: 20030201, end: 20030724
  2. NALBUPHINE [Concomitant]
     Dosage: DOSE: 10MG/ML SOL VIA MOTHER
     Dates: start: 20030727
  3. PHYTONADIONE [Concomitant]
     Dosage: DOSE: 1MG/0.5ML SOLUTION
     Dates: start: 20030728
  4. AMPICILLIN SODIUM [Concomitant]
     Dosage: DOSE: 500MG
     Route: 051
     Dates: start: 20030728
  5. GENTAMICIN SULFATE [Concomitant]
     Dosage: DOSE: 40MG/ML SOLUTION
     Dates: start: 20030728
  6. PHENOBARBITAL SODIUM 100MG CAP [Concomitant]
     Dosage: DOSE: 65MG/ML
     Dates: start: 20030729
  7. SYNAGIS [Concomitant]
     Dosage: DOSE: 15MG/KG MONTHLY
     Route: 030
     Dates: start: 20031103

REACTIONS (47)
  - ACTIVATED PARTIAL THROMBOPLASTIN TIME PROLONGED [None]
  - ANAPHYLACTIC SHOCK [None]
  - APHAKIA [None]
  - BLOOD CREATININE INCREASED [None]
  - BLOOD FIBRINOGEN INCREASED [None]
  - BLOOD GASES ABNORMAL [None]
  - BLOOD POTASSIUM INCREASED [None]
  - BLOOD UREA INCREASED [None]
  - CEREBRAL INFARCTION [None]
  - CEREBRAL PALSY [None]
  - CONGENITAL NYSTAGMUS [None]
  - CONVULSION [None]
  - COOMBS TEST POSITIVE [None]
  - DISABLED RELATIVE [None]
  - EYE HAEMORRHAGE [None]
  - FALL [None]
  - FOETAL HEART RATE DECELERATION [None]
  - HAEMATOCRIT INCREASED [None]
  - HAEMOGLOBIN INCREASED [None]
  - HAEMORRHAGE [None]
  - HEMIPARESIS [None]
  - HYPOACUSIS [None]
  - HYPOCALCAEMIA [None]
  - HYPOXIA [None]
  - INTRAVENTRICULAR HAEMORRHAGE [None]
  - IRIDOCELE [None]
  - IRRITABILITY [None]
  - LETHARGY [None]
  - MECONIUM STAIN [None]
  - MENTAL RETARDATION [None]
  - NERVOUS SYSTEM DISORDER [None]
  - NEUROPATHY PERIPHERAL [None]
  - PERIVENTRICULAR LEUKOMALACIA [None]
  - PROTHROMBIN TIME PROLONGED [None]
  - RETINAL DETACHMENT [None]
  - SACCADIC EYE MOVEMENT [None]
  - SEPSIS [None]
  - STRIDOR [None]
  - SUBARACHNOID HAEMORRHAGE [None]
  - SUBDURAL HAEMORRHAGE [None]
  - SUPERIOR SAGITTAL SINUS THROMBOSIS [None]
  - THROMBOCYTOPENIA [None]
  - THROMBOSIS [None]
  - TRAUMATIC BRAIN INJURY [None]
  - UNEQUAL LIMB LENGTH [None]
  - VISUAL IMPAIRMENT [None]
  - WHITE BLOOD CELL COUNT ABNORMAL [None]
